FAERS Safety Report 9411784 (Version 1)
Quarter: 2013Q3

REPORT INFORMATION
  Report Type: Spontaneous
  Country: US (occurrence: US)
  Receive Date: 20130722
  Receipt Date: 20130722
  Transmission Date: 20140515
  Serious: No
  Sender: FDA-Public Use
  Company Number: US-PFIZER INC-2013213162

PATIENT
  Age: 64 Year
  Sex: Male

DRUGS (4)
  1. NEURONTIN [Suspect]
     Indication: NEURALGIA
     Dosage: 1500 MG, 1X/DAY
     Dates: start: 20130705
  2. METHADONE [Concomitant]
     Indication: ALCOHOLISM
     Dosage: 30 MG, 1X/DAY
  3. METHADONE [Concomitant]
     Indication: DRUG DEPENDENCE
  4. HYDROCHLOROTHIAZIDE [Concomitant]
     Indication: HYPERTENSION
     Dosage: 25 MG, 1X/DAY

REACTIONS (1)
  - Oedema peripheral [Unknown]
